FAERS Safety Report 13694298 (Version 1)
Quarter: 2017Q2

REPORT INFORMATION
  Report Type: Other
  Country: FR (occurrence: FR)
  Receive Date: 20170627
  Receipt Date: 20170627
  Transmission Date: 20170830
  Serious: Yes (Other)
  Sender: FDA-Public Use
  Company Number: FR-EMCURE PHARMS-2017HTG00163

PATIENT
  Age: 67 Year
  Sex: Male
  Weight: 80 kg

DRUGS (9)
  1. ALKERAN [Suspect]
     Active Substance: MELPHALAN
     Indication: BONE MARROW CONDITIONING REGIMEN
     Dosage: 280 MG, ONCE
     Route: 042
     Dates: start: 20160621, end: 20160621
  2. MABTHERA [Suspect]
     Active Substance: RITUXIMAB
     Indication: BONE MARROW CONDITIONING REGIMEN
     Dosage: 500 MG, ONCE
     Route: 042
     Dates: start: 20160602, end: 20160602
  3. BICNU [Suspect]
     Active Substance: CARMUSTINE
     Indication: BONE MARROW CONDITIONING REGIMEN
     Dosage: 600 MG, ONCE
     Route: 042
     Dates: start: 20160617, end: 20160617
  4. CYTARABINE. [Suspect]
     Active Substance: CYTARABINE
     Indication: BONE MARROW CONDITIONING REGIMEN
     Dosage: 400 MG, 2X/DAY
     Route: 042
     Dates: start: 20160617, end: 20160620
  5. DEXAMETHASONE. [Concomitant]
     Active Substance: DEXAMETHASONE
  6. ETOPOSIDE. [Suspect]
     Active Substance: ETOPOSIDE
     Indication: BONE MARROW CONDITIONING REGIMEN
     Dosage: 200 MG, 2X/DAY
     Route: 042
     Dates: start: 20160617, end: 20160620
  7. OXALIPLATIN. [Concomitant]
     Active Substance: OXALIPLATIN
  8. MABTHERA [Suspect]
     Active Substance: RITUXIMAB
     Dosage: 500 MG, ONCE
     Route: 042
     Dates: start: 20160608, end: 20160608
  9. ZEVALIN [Suspect]
     Active Substance: IBRITUMOMAB TIUXETAN
     Indication: BONE MARROW CONDITIONING REGIMEN
     Dosage: 1 MG, ONCE
     Route: 042
     Dates: start: 20160608, end: 20160608

REACTIONS (2)
  - Aplasia [Recovered/Resolved]
  - Staphylococcal infection [Recovered/Resolved]

NARRATIVE: CASE EVENT DATE: 20160624
